FAERS Safety Report 12327096 (Version 1)
Quarter: 2016Q2

REPORT INFORMATION
  Report Type: Spontaneous
  Country: US (occurrence: US)
  Receive Date: 20160503
  Receipt Date: 20160503
  Transmission Date: 20160815
  Serious: No
  Sender: FDA-Public Use
  Company Number: US-WARNER CHILCOTT, LLC-1051323

PATIENT
  Age: 72 Year
  Sex: Female

DRUGS (3)
  1. TOPROL XL [Concomitant]
     Active Substance: METOPROLOL SUCCINATE
  2. VITAMIN D [Concomitant]
     Active Substance: CHOLECALCIFEROL
  3. ATELVIA [Suspect]
     Active Substance: RISEDRONATE SODIUM
     Indication: OSTEOPOROSIS
     Route: 048

REACTIONS (1)
  - Nausea [Recovered/Resolved]
